FAERS Safety Report 10227283 (Version 1)
Quarter: 2014Q2

REPORT INFORMATION
  Report Type: Spontaneous
  Country: US (occurrence: None)
  Receive Date: 20140609
  Receipt Date: 20140609
  Transmission Date: 20141212
  Serious: Yes (Other)
  Sender: FDA-Public Use
  Company Number: None

PATIENT
  Age: 57 Year
  Sex: Male

DRUGS (6)
  1. SOVALDI [Suspect]
     Indication: HEPATITIS C
     Route: 048
     Dates: start: 20140127
  2. IBUPROFEN [Concomitant]
  3. METOPROLOL/HCTZ [Concomitant]
  4. VITAMIN D [Concomitant]
  5. ASA [Concomitant]
  6. RIBAPAK [Concomitant]

REACTIONS (4)
  - Arthralgia [None]
  - Bone pain [None]
  - Myalgia [None]
  - Mobility decreased [None]
